FAERS Safety Report 6532732-3 (Version None)
Quarter: 2009Q4

REPORT INFORMATION
  Report Type: 
  Country: None (occurrence: None)
  Receive Date: 20091231
  Receipt Date: 20091220
  Transmission Date: 20100525
  Serious: Yes (Hospitalization)
  Sender: FDA-Public Use
  Company Number: 20097862

PATIENT
  Age: 56 Year
  Sex: Female

DRUGS (1)
  1. LIORESAL [Suspect]
     Indication: MUSCLE SPASTICITY
     Dosage: 350 - 150 MCG, DAILY, INTRATHECAL, S
     Route: 037

REACTIONS (2)
  - LETHARGY [None]
  - MEDICAL DEVICE COMPLICATION [None]
